FAERS Safety Report 18687800 (Version 2)
Quarter: 2025Q3

REPORT INFORMATION
  Report Type: Spontaneous
  Country: US (occurrence: US)
  Receive Date: 20201231
  Receipt Date: 20250706
  Transmission Date: 20251021
  Serious: Yes (Life-Threatening, Hospitalization, Other)
  Sender: AUROBINDO
  Company Number: US-BAYER-2020-259175

PATIENT
  Age: 69 Year
  Sex: Male

DRUGS (2)
  1. METHYLPREDNISOLONE [Suspect]
     Active Substance: METHYLPREDNISOLONE
     Indication: Neck pain
     Route: 065
  2. ASPIRIN [Suspect]
     Active Substance: ASPIRIN
     Indication: Neck pain
     Route: 065

REACTIONS (3)
  - Arterial haemorrhage [Recovered/Resolved]
  - Anaemia [Recovered/Resolved]
  - Upper gastrointestinal haemorrhage [Recovered/Resolved]
